FAERS Safety Report 18097839 (Version 1)
Quarter: 2020Q3

REPORT INFORMATION
  Report Type: Spontaneous
  Country: US (occurrence: US)
  Receive Date: 20200730
  Receipt Date: 20200730
  Transmission Date: 20201103
  Serious: Yes (Death, Other)
  Sender: FDA-Public Use
  Company Number: US-GILEAD-2020-0486577

PATIENT
  Age: 82 Year
  Sex: Female
  Weight: 89.4 kg

DRUGS (29)
  1. GABAPENTIN. [Concomitant]
     Active Substance: GABAPENTIN
     Dosage: 100 MG, TID
     Route: 048
     Dates: end: 20200721
  2. MUPIROCIN. [Concomitant]
     Active Substance: MUPIROCIN
     Dosage: UNK, BID
     Route: 045
     Dates: start: 20200710, end: 20200715
  3. ONDANSETRON [Concomitant]
     Active Substance: ONDANSETRON
     Dosage: 4 MG Q 8 HR PRN
     Route: 042
     Dates: start: 20200709, end: 20200709
  4. SODIUM BICARBONATE IN DEXTROSE 5% [Concomitant]
     Dosage: CONTINUOUS
     Route: 042
     Dates: start: 20200709, end: 20200710
  5. DEXAMETHASONE. [Concomitant]
     Active Substance: DEXAMETHASONE
     Dosage: 6 MG Q12?24HR
     Route: 042
     Dates: start: 20200709
  6. DIPHENHYDRAMINE. [Concomitant]
     Active Substance: DIPHENHYDRAMINE
     Dosage: 25 MG Q6H PRN
     Route: 042
     Dates: start: 20200710, end: 20200710
  7. HYDRALAZINE [Concomitant]
     Active Substance: HYDRALAZINE HYDROCHLORIDE
     Dosage: 10 MG Q 6 HR PRN
     Route: 042
     Dates: start: 20200709, end: 20200721
  8. REMDESIVIR. [Suspect]
     Active Substance: REMDESIVIR
     Dosage: 100 MG Q24H
     Route: 042
     Dates: start: 20200711, end: 20200714
  9. CLONIDINE. [Concomitant]
     Active Substance: CLONIDINE
     Dosage: 0.1?0.2 MG
     Route: 048
     Dates: end: 20200718
  10. FAMOTIDINE. [Concomitant]
     Active Substance: FAMOTIDINE
     Dosage: 20 MG, QD
     Route: 048
     Dates: end: 20200717
  11. SODIUM POLYSTYRENE SULFONATE. [Concomitant]
     Active Substance: SODIUM POLYSTYRENE SULFONATE
     Dosage: 15 G, QD
     Route: 048
     Dates: start: 20200713, end: 20200721
  12. REMDESIVIR. [Suspect]
     Active Substance: REMDESIVIR
     Indication: COVID-19 PNEUMONIA
     Dosage: 200 MG, ONCE
     Route: 042
     Dates: start: 20200710, end: 20200710
  13. ASCORBIC ACID. [Concomitant]
     Active Substance: ASCORBIC ACID
     Dosage: 1000 MG, TID
     Route: 048
     Dates: start: 20200712, end: 20200714
  14. SODIUM BICARBONATE IN DEXTROSE 5% [Concomitant]
     Dosage: UNK CONTINUOUS
     Route: 042
     Dates: start: 20200709, end: 20200710
  15. ZINC SULFATE. [Concomitant]
     Active Substance: ZINC SULFATE
     Dosage: 220 MG, BID
     Route: 048
     Dates: start: 20200712, end: 20200714
  16. ALPRAZOLAM. [Concomitant]
     Active Substance: ALPRAZOLAM
     Dosage: 0.25 MG, Q6H PRN
     Dates: start: 20200713, end: 20200717
  17. AMLODIPINE [Concomitant]
     Active Substance: AMLODIPINE BESYLATE
     Dosage: 5?10 MG
     Route: 048
     Dates: end: 20200721
  18. ATORVASTATIN [Concomitant]
     Active Substance: ATORVASTATIN
     Dosage: 40 MG, QHS
     Route: 048
     Dates: start: 20200712, end: 20200714
  19. CHLORHEXIDINE [Concomitant]
     Active Substance: CHLORHEXIDINE
     Dosage: 15 ML, BID
     Route: 048
     Dates: start: 20200710, end: 20200714
  20. LORAZEPAM. [Concomitant]
     Active Substance: LORAZEPAM
     Dosage: 0.5 MG Q4HR PRN
     Route: 042
     Dates: start: 20200709, end: 20200717
  21. PATIROMER SORBITEX CALCIUM [Concomitant]
     Active Substance: PATIROMER
     Dosage: 8.4 G, ONCE
     Route: 047
     Dates: start: 20200710, end: 20200710
  22. ACETAMINOPHEN. [Concomitant]
     Active Substance: ACETAMINOPHEN
     Dosage: 1000 MG, Q6H PRN
     Route: 048
     Dates: start: 20200710, end: 20200710
  23. ALBUTEROL [SALBUTAMOL] [Concomitant]
     Active Substance: ALBUTEROL
     Dosage: 2 PUFFS, Q8H
     Route: 055
     Dates: start: 20200710, end: 20200718
  24. ENOXAPARIN [Concomitant]
     Active Substance: ENOXAPARIN
     Dosage: 30?90 MG Q24H
     Route: 058
     Dates: start: 20200709, end: 20200710
  25. CHOLECALCIFEROL [Concomitant]
     Active Substance: CHOLECALCIFEROL
     Dosage: 20000 UNITS
     Route: 048
     Dates: start: 20200712, end: 20200712
  26. LEVOFLOXACIN. [Concomitant]
     Active Substance: LEVOFLOXACIN
     Dosage: 500 MG Q 28 HR
     Route: 042
     Dates: start: 20200713, end: 20200715
  27. SODIUM BICARBONATE. [Concomitant]
     Active Substance: SODIUM BICARBONATE
     Dosage: 650?1300 BID?TID
     Route: 048
     Dates: start: 20200709, end: 20200721
  28. SUCRALFATE. [Concomitant]
     Active Substance: SUCRALFATE
     Dosage: 1 G, Q6H
     Route: 048
     Dates: start: 20200712, end: 20200721
  29. TIMOLOL MALEATE 0.5% [Concomitant]
     Active Substance: TIMOLOL MALEATE
     Dosage: 1 DROP BOTH EYES, BID
     Dates: end: 20200721

REACTIONS (4)
  - Oxygen saturation decreased [Not Recovered/Not Resolved]
  - Death [Fatal]
  - Drug ineffective [Not Recovered/Not Resolved]
  - Bradycardia [Not Recovered/Not Resolved]

NARRATIVE: CASE EVENT DATE: 20200721
